FAERS Safety Report 26169914 (Version 1)
Quarter: 2025Q4

REPORT INFORMATION
  Report Type: Spontaneous
  Country: US (occurrence: US)
  Receive Date: 20251217
  Receipt Date: 20251217
  Transmission Date: 20260118
  Serious: No
  Sender: BIOVITRUM
  Company Number: US-BIOVITRUM-2025-US-017246

PATIENT
  Age: 69 Year
  Sex: Male

DRUGS (1)
  1. DOPTELET [Suspect]
     Active Substance: AVATROMBOPAG MALEATE
     Indication: Immune thrombocytopenia
     Dosage: ON MONDAYS AND FRIDAYS
     Route: 048

REACTIONS (2)
  - Anxiety [Unknown]
  - Sleep disorder [Unknown]
